FAERS Safety Report 25155272 (Version 1)
Quarter: 2025Q2

REPORT INFORMATION
  Report Type: Report from Study
  Country: CO (occurrence: CO)
  Receive Date: 20250403
  Receipt Date: 20250403
  Transmission Date: 20250716
  Serious: Yes (Other)
  Sender: ALEXION PHARMACEUTICALS
  Company Number: CO-AstraZeneca-CH-00836191A

PATIENT
  Age: 63 Year
  Weight: 51 kg

DRUGS (1)
  1. DURVALUMAB [Suspect]
     Active Substance: DURVALUMAB
     Indication: Bile duct cancer
     Dosage: 1500 MILLIGRAM, QMONTH

REACTIONS (7)
  - Venous thrombosis [Unknown]
  - Inflammation [Unknown]
  - Intra-abdominal fluid collection [Unknown]
  - Pain [Unknown]
  - White blood cell count increased [Unknown]
  - Blood potassium decreased [Unknown]
  - Device placement issue [Unknown]
